FAERS Safety Report 23079573 (Version 1)
Quarter: 2023Q4

REPORT INFORMATION
  Report Type: Spontaneous
  Country: FI (occurrence: FI)
  Receive Date: 20231018
  Receipt Date: 20231018
  Transmission Date: 20240109
  Serious: Yes (Death, Other)
  Sender: FDA-Public Use
  Company Number: FI-MYLANLABS-2023M1108695

PATIENT
  Age: 46 Year
  Sex: Female
  Weight: 85 kg

DRUGS (12)
  1. CLOZAPINE [Suspect]
     Active Substance: CLOZAPINE
     Indication: Schizophrenia
     Dosage: UNK
     Route: 065
     Dates: start: 201904
  2. CLOZAPINE [Suspect]
     Active Substance: CLOZAPINE
     Indication: Schizophrenia
     Dosage: 200 MILLIGRAM, QD
     Route: 065
     Dates: start: 20230701
  3. METOCLOPRAMIDE HYDROCHLORIDE [Concomitant]
     Active Substance: METOCLOPRAMIDE HYDROCHLORIDE
     Dosage: 1X1-3
     Route: 065
  4. POLYETHYLENE GLYCOL 4000 [Concomitant]
     Active Substance: POLYETHYLENE GLYCOL 4000
     Dosage: 12 GRAM, TID (1+1+1); REGULARLY
     Route: 065
  5. ELIQUIS [Concomitant]
     Active Substance: APIXABAN
     Dosage: 5 MILLIGRAM, BID (1+0+1); REGULARLY
     Route: 065
  6. BISOPROLOL [Concomitant]
     Active Substance: BISOPROLOL\BISOPROLOL FUMARATE
     Dosage: QD (1+0+0); AS NEEDED
     Route: 065
  7. LEVOMEPROMAZINE MALEATE [Concomitant]
     Active Substance: LEVOMEPROMAZINE MALEATE
     Dosage: 100 MILLIGRAM, QD (0+0+2); REGULARLY
     Route: 065
  8. OLANZAPIN RATIOPHARM [Concomitant]
     Dosage: 10 MILLIGRAM, QD (0+0+1); REGULARLY
     Route: 065
  9. Temesta [Concomitant]
     Dosage: AS NEEDED
     Route: 065
  10. Temesta [Concomitant]
     Dosage: (1X1-3); REGULARLY
     Route: 065
  11. CHLORAL HYDRATE [Concomitant]
     Active Substance: CHLORAL HYDRATE
     Dosage: 125 MILLILITER, 1 BOTTLE
     Route: 048
  12. SERETIDE [Concomitant]
     Active Substance: FLUTICASONE PROPIONATE\SALMETEROL XINAFOATE
     Dosage: BID (2+0+2)
     Route: 065

REACTIONS (5)
  - Death [Fatal]
  - Pneumonia [Unknown]
  - Off label use [Unknown]
  - Treatment noncompliance [Unknown]
  - Adverse event [Unknown]

NARRATIVE: CASE EVENT DATE: 20231002
